FAERS Safety Report 5126488-9 (Version None)
Quarter: 2006Q4

REPORT INFORMATION
  Report Type: 
  Country: None (occurrence: None)
  Receive Date: 20061010
  Receipt Date: 20060927
  Transmission Date: 20070319
  Serious: Yes (Death)
  Sender: FDA-Public Use
  Company Number: 2006096682

PATIENT
  Sex: Female

DRUGS (1)
  1. DETROL LA [Suspect]
     Indication: HYPERTONIC BLADDER
     Dates: start: 20060620, end: 20060623

REACTIONS (3)
  - CONFUSIONAL STATE [None]
  - NON-SMALL CELL LUNG CANCER [None]
  - REFUSAL OF TREATMENT BY PATIENT [None]
